FAERS Safety Report 8420952-2 (Version None)
Quarter: 2012Q2

REPORT INFORMATION
  Report Type: 
  Country: None (occurrence: None)
  Receive Date: 20120608
  Receipt Date: 20120601
  Transmission Date: 20120825
  Serious: Yes (Other)
  Sender: FDA-Public Use
  Company Number: FR-PFIZER INC-2012131925

PATIENT
  Age: 16 Year
  Sex: Female

DRUGS (2)
  1. VFEND [Suspect]
     Indication: PROPHYLAXIS
     Dosage: UNK
     Route: 048
  2. VFEND [Suspect]
     Indication: ASPERGILLOSIS
     Dosage: UNK
     Route: 048
     Dates: start: 20110801

REACTIONS (2)
  - PHOTOSENSITIVITY REACTION [None]
  - DERMATITIS BULLOUS [None]
